FAERS Safety Report 23263527 (Version 1)
Quarter: 2023Q4

REPORT INFORMATION
  Report Type: Spontaneous
  Country: US (occurrence: None)
  Receive Date: 20231205
  Receipt Date: 20231205
  Transmission Date: 20240110
  Serious: Yes (Hospitalization)
  Sender: FDA-Public Use
  Company Number: None

PATIENT
  Sex: Male

DRUGS (2)
  1. MYCOPHENOLIC ACID [Suspect]
     Active Substance: MYCOPHENOLIC ACID
     Indication: Renal transplant
     Dosage: 360 MG ORAL??TAKE 2 TABLETS (720 MG) BY MOUTH EVERY 12 HOURS. HOLD FOR FREQ UTI
     Route: 048
  2. MYCOPHENOLIC ACID [Suspect]
     Active Substance: MYCOPHENOLIC ACID
     Dosage: FREQUENCY : EVERY 12 HOURS;?
     Route: 048

REACTIONS (2)
  - Urinary tract infection [None]
  - Therapy interrupted [None]
